FAERS Safety Report 9688425 (Version 1)
Quarter: 2013Q4

REPORT INFORMATION
  Report Type: Spontaneous
  Country: US (occurrence: US)
  Receive Date: 20131114
  Receipt Date: 20131114
  Transmission Date: 20140711
  Serious: Yes (Hospitalization, Other)
  Sender: FDA-Public Use
  Company Number: US-UCBSA-102948

PATIENT
  Sex: 0

DRUGS (3)
  1. KEPPRA [Suspect]
  2. DILANTIN [Concomitant]
  3. PHENOBARBITAL [Concomitant]

REACTIONS (2)
  - Convulsion [Unknown]
  - Affective disorder [Unknown]
